FAERS Safety Report 7582945 (Version 5)
Quarter: 2022Q1

REPORT INFORMATION
  Report Type: Spontaneous
  Country: GB (occurrence: GB)
  Receive Date: 20100914
  Receipt Date: 20220309
  Transmission Date: 20220424
  Serious: Yes (Hospitalization, Disabling, Other)
  Sender: FDA-Public Use
  Company Number: GB-RANBAXY-2010RR-36550

PATIENT
  Age: 70 Year
  Sex: Male

DRUGS (18)
  1. MEROPENEM [Interacting]
     Active Substance: MEROPENEM
     Indication: Cellulitis
     Dosage: 2 G, 2X PER DAY
     Route: 030
  2. MEROPENEM [Interacting]
     Active Substance: MEROPENEM
     Indication: Antibiotic therapy
     Dosage: 2 G, 2X PER DAY
     Route: 042
  3. MEROPENEM [Interacting]
     Active Substance: MEROPENEM
     Dosage: 2 G, 2X PER DAY
     Route: 042
  4. WARFARIN [Interacting]
     Active Substance: WARFARIN
     Indication: Pulmonary embolism
     Dosage: NI
     Route: 065
  5. WARFARIN [Interacting]
     Active Substance: WARFARIN
     Indication: Factor V deficiency
  6. CIPROFLOXACIN [Suspect]
     Active Substance: CIPROFLOXACIN
     Indication: Chalazion
     Dosage: 750 MG, 2X PER DAY
     Route: 048
  7. CIPROFLOXACIN [Suspect]
     Active Substance: CIPROFLOXACIN
     Indication: Antibiotic therapy
     Dosage: 750 MG, 2X PER DAY
     Route: 048
  8. ASPIRIN [Interacting]
     Active Substance: ASPIRIN
     Indication: Antiplatelet therapy
     Dosage: PATIENT RECEIVED 300MG ON ADMITTANCE AND STARTED ON A 75MG/DAY REGIME
     Route: 065
  9. ASPIRIN [Interacting]
     Active Substance: ASPIRIN
     Dosage: PATIENT RECEIVED 300MG ON ADMITTANCE AND STARTED ON A 75MG/DAY REGIME
     Route: 065
  10. CLOPIDOGREL [Interacting]
     Active Substance: CLOPIDOGREL BISULFATE
     Indication: Chest pain
     Dosage: 300 MILLIGRAM, DAILY
     Route: 048
  11. CLOPIDOGREL [Interacting]
     Active Substance: CLOPIDOGREL BISULFATE
     Indication: Antibiotic therapy
     Dosage: 75 MILLIGRAM, DAILY
     Route: 048
  12. TEICOPLANIN [Interacting]
     Active Substance: TEICOPLANIN
     Indication: Cellulitis
     Dosage: 400 MG, 1X PER DAY
     Route: 030
  13. TEICOPLANIN [Interacting]
     Active Substance: TEICOPLANIN
     Indication: Antibiotic therapy
  14. ERYTHROMYCIN [Interacting]
     Active Substance: ERYTHROMYCIN
     Indication: Antibiotic therapy
     Dosage: 250 MG, 4X PER DAY
     Route: 048
  15. ERYTHROMYCIN [Interacting]
     Active Substance: ERYTHROMYCIN
     Indication: Diabetes mellitus
     Dosage: 250 MG, 4X PER DAY
     Route: 048
  16. METRONIDAZOLE [Interacting]
     Active Substance: METRONIDAZOLE
     Indication: Chalazion
     Dosage: 400 MG, 3X PER DAY
     Route: 048
  17. METRONIDAZOLE [Interacting]
     Active Substance: METRONIDAZOLE
     Indication: Antibiotic therapy
     Dosage: 400 MG, 3X PER DAY
     Route: 048
  18. VITAMIN K [Concomitant]
     Active Substance: PHYTONADIONE
     Indication: Product used for unknown indication
     Dosage: UNK
     Route: 065

REACTIONS (14)
  - Coagulation time prolonged [Recovered/Resolved]
  - Potentiating drug interaction [Unknown]
  - Headache [Unknown]
  - Pyrexia [Unknown]
  - Eye pain [Recovered/Resolved with Sequelae]
  - Hyphaema [Not Recovered/Not Resolved]
  - Decreased appetite [Unknown]
  - Nausea [Unknown]
  - Intraocular pressure increased [Unknown]
  - International normalised ratio increased [Recovered/Resolved]
  - Drug interaction [Recovered/Resolved]
  - Visual acuity reduced [Unknown]
  - Coagulation time prolonged [Unknown]
  - Off label use [Unknown]
